FAERS Safety Report 5445084-7 (Version None)
Quarter: 2007Q3

REPORT INFORMATION
  Report Type: 
  Country: None (occurrence: None)
  Receive Date: 20070906
  Receipt Date: 20070831
  Transmission Date: 20080115
  Serious: No
  Sender: FDA-Public Use
  Company Number: FI-PFIZER INC-2007068296

PATIENT
  Age: 10 Year
  Sex: Male
  Weight: 47 kg

DRUGS (2)
  1. VFEND [Suspect]
     Indication: FUNGAL INFECTION
     Route: 048
     Dates: start: 20070522, end: 20070730
  2. DITRIM [Concomitant]

REACTIONS (5)
  - BLISTER [None]
  - ERYTHEMA [None]
  - LIP OEDEMA [None]
  - PHOTOSENSITIVITY REACTION [None]
  - SKIN REACTION [None]
